FAERS Safety Report 9911544 (Version 2)
Quarter: 2014Q1

REPORT INFORMATION
  Report Type: Spontaneous
  Country: BE (occurrence: BE)
  Receive Date: 20140219
  Receipt Date: 20140303
  Transmission Date: 20141002
  Serious: Yes (Other)
  Sender: FDA-Public Use
  Company Number: PHHY2014BE019978

PATIENT
  Age: 67 Year
  Sex: Female

DRUGS (6)
  1. ACLASTA [Suspect]
     Indication: OSTEOPOROSIS
     Dosage: 5 MG,
     Route: 042
     Dates: start: 201206
  2. ACLASTA [Suspect]
     Dosage: 5 MG,
     Route: 042
     Dates: start: 201306
  3. ORENCIA [Concomitant]
     Indication: RHEUMATOID ARTHRITIS
     Dosage: UKN QMO
     Route: 042
     Dates: start: 201012, end: 201309
  4. CELEBREX [Concomitant]
     Dosage: UNK UKN, UNK
  5. DAFALGAN [Concomitant]
     Dosage: UNK UKN, UNK
  6. CYMBALTA [Concomitant]
     Dosage: UNK UKN, UNK

REACTIONS (15)
  - Wound [Unknown]
  - Purulent discharge [Unknown]
  - Staphylococcal infection [Unknown]
  - Oral cavity fistula [Unknown]
  - Dental necrosis [Unknown]
  - Osteomyelitis [Unknown]
  - Inflammation [Recovered/Resolved]
  - Erythema [Unknown]
  - Osteonecrosis of jaw [Not Recovered/Not Resolved]
  - Impaired healing [Unknown]
  - Bunion [Recovered/Resolved]
  - Skin irritation [Recovered/Resolved]
  - Pain [Unknown]
  - Joint dislocation [Unknown]
  - Oedema peripheral [Unknown]
